FAERS Safety Report 8382052-X (Version None)
Quarter: 2012Q2

REPORT INFORMATION
  Report Type: 
  Country: None (occurrence: None)
  Receive Date: 20120524
  Receipt Date: 20120507
  Transmission Date: 20120825
  Serious: Yes (Death, Life-Threatening, Hospitalization, Other)
  Sender: FDA-Public Use
  Company Number: PL-JNJFOC-20120414099

PATIENT
  Age: 9 Year
  Sex: Female
  Weight: 20 kg

DRUGS (2)
  1. KIOVIG [Concomitant]
     Indication: IMMUNODEFICIENCY
     Dosage: DOSE:17.5 UNITS UNSPECIFIED
     Route: 065
     Dates: start: 20120320
  2. REMICADE [Suspect]
     Indication: CROHN'S DISEASE
     Route: 042
     Dates: start: 20111117, end: 20120223

REACTIONS (5)
  - PNEUMONIA [None]
  - ACUTE RESPIRATORY DISTRESS SYNDROME [None]
  - PULMONARY MYCOSIS [None]
  - ACUTE TONSILLITIS [None]
  - STOMATITIS [None]
